FAERS Safety Report 6704866-1 (Version None)
Quarter: 2010Q2

REPORT INFORMATION
  Report Type: 
  Country: None (occurrence: None)
  Receive Date: 20100430
  Receipt Date: 20100111
  Transmission Date: 20101027
  Serious: No
  Sender: FDA-Public Use
  Company Number: US-ASTRAZENECA-2010SE01249

PATIENT
  Age: 51 Year
  Sex: Male
  Weight: 83.9 kg

DRUGS (3)
  1. NEXIUM [Suspect]
     Indication: EROSIVE OESOPHAGITIS
     Route: 065
     Dates: start: 20090701
  2. LISINOPRIL [Concomitant]
  3. HYOMAX SR [Concomitant]

REACTIONS (3)
  - ABDOMINAL PAIN [None]
  - CHEST PAIN [None]
  - RENAL PAIN [None]
